FAERS Safety Report 6574318-0 (Version None)
Quarter: 2010Q1

REPORT INFORMATION
  Report Type: 
  Country: None (occurrence: None)
  Receive Date: 20100201
  Receipt Date: 20100119
  Transmission Date: 20100710
  Serious: Yes (Life-Threatening, Hospitalization, Disabling)
  Sender: FDA-Public Use
  Company Number: 2010AL000531

PATIENT
  Age: 29 Year
  Sex: Female

DRUGS (4)
  1. MIRTAZAPINE [Suspect]
     Indication: DEPRESSION
     Dosage: 28; X1
     Dates: start: 20050118, end: 20050119
  2. FEVERALL [Suspect]
     Dosage: 1X
     Dates: start: 20050118, end: 20050119
  3. ZOPLICONE [Concomitant]
  4. ALCOHOL [Concomitant]

REACTIONS (2)
  - HEPATIC FAILURE [None]
  - MULTIPLE DRUG OVERDOSE [None]
